FAERS Safety Report 25975492 (Version 1)
Quarter: 2025Q4

REPORT INFORMATION
  Report Type: Spontaneous
  Country: CA (occurrence: CA)
  Receive Date: 20251029
  Receipt Date: 20251029
  Transmission Date: 20260118
  Serious: Yes (Other)
  Sender: EISAI
  Company Number: CA-Eisai-EC-2025-198687

PATIENT
  Sex: Female

DRUGS (2)
  1. LENVATINIB [Suspect]
     Active Substance: LENVATINIB
     Indication: Endometrial cancer
     Dosage: FREQUENCY UNKNOWN
     Route: 048
  2. PEMBROLIZUMAB [Suspect]
     Active Substance: PEMBROLIZUMAB
     Indication: Endometrial cancer
     Dosage: DOSE AND FREQUENCY UNKNOWN
     Route: 041

REACTIONS (7)
  - Arthralgia [Unknown]
  - Back pain [Unknown]
  - Fatigue [Unknown]
  - Hypertensive crisis [Unknown]
  - Malignant neoplasm progression [Unknown]
  - Thyroid disorder [Unknown]
  - Product use issue [Unknown]
